FAERS Safety Report 6988539-6 (Version None)
Quarter: 2010Q3

REPORT INFORMATION
  Report Type: 
  Country: None (occurrence: None)
  Receive Date: 20100916
  Receipt Date: 20100904
  Transmission Date: 20110219
  Serious: Yes (Other)
  Sender: FDA-Public Use
  Company Number: US-PFIZER INC-2010105376

PATIENT
  Sex: Female
  Weight: 56.689 kg

DRUGS (16)
  1. CHANTIX [Suspect]
     Indication: SMOKING CESSATION THERAPY
     Dosage: 0.5 MG, 1X/DAY
     Route: 048
     Dates: start: 20100810, end: 20100902
  2. NORCO [Concomitant]
     Indication: PAIN
     Dosage: 325 MG, 5X/DAY
     Route: 048
  3. NORCO [Concomitant]
     Indication: SPINAL OPERATION
  4. SYNTHROID [Concomitant]
     Indication: THYROID DISORDER
     Dosage: UNK
     Route: 048
  5. TIMOLOL [Concomitant]
     Indication: GLAUCOMA
     Dosage: UNK
  6. SOMA [Concomitant]
     Indication: PAIN
     Dosage: 250 MG, UNK
     Route: 048
  7. SOMA [Concomitant]
     Indication: MUSCLE RELAXANT THERAPY
  8. HYDROCHLOROTHIAZIDE [Concomitant]
     Indication: ARTHRITIS
     Dosage: 50 MG, 1X/DAY
  9. HYDROCHLOROTHIAZIDE [Concomitant]
     Indication: SWELLING
  10. CLOBETASOL PROPIONATE [Concomitant]
     Indication: PSORIASIS
     Dosage: UNK
     Route: 061
  11. TEMAZEPAM [Concomitant]
     Indication: SLEEP DISORDER
     Dosage: 30 MG, 1X/DAY
  12. LUNESTA [Concomitant]
     Indication: SLEEP DISORDER
     Dosage: 3 MG, 1X/DAY
     Route: 048
  13. KLOR-CON [Concomitant]
     Indication: HYPOKALAEMIA
     Dosage: 10 MG, 1X/DAY
     Route: 048
  14. SIMVASTATIN [Concomitant]
     Indication: BLOOD CHOLESTEROL ABNORMAL
     Dosage: 40 MG, 1X/DAY
     Route: 048
  15. OMEGA 3-6-9 [Concomitant]
     Dosage: UNK
  16. TIMOLOL MALEATE [Concomitant]
     Indication: GLAUCOMA
     Dosage: 10 MG, 2X/DAY

REACTIONS (5)
  - DEHYDRATION [None]
  - DYSPHAGIA [None]
  - MUSCLE SPASMS [None]
  - NERVOUSNESS [None]
  - SYNCOPE [None]
